FAERS Safety Report 9355849 (Version 1)
Quarter: 2013Q2

REPORT INFORMATION
  Report Type: Spontaneous
  Country: GB (occurrence: None)
  Receive Date: 20130614
  Receipt Date: 20130614
  Transmission Date: 20140414
  Serious: Yes (Other)
  Sender: FDA-Public Use
  Company Number: GB-1198633

PATIENT
  Sex: Male
  Weight: 86 kg

DRUGS (3)
  1. AZOPT [Suspect]
     Indication: INTRAOCULAR PRESSURE INCREASED
     Route: 047
     Dates: start: 20080802
  2. COMBIGAN [Suspect]
     Indication: INTRAOCULAR PRESSURE INCREASED
     Route: 047
     Dates: start: 20080802
  3. LUMIGAN [Suspect]
     Indication: INTRAOCULAR PRESSURE INCREASED
     Dosage: EYE DROPS TAKEN ONCE AT BEDTIME.
     Route: 047

REACTIONS (9)
  - Parkinson^s disease [None]
  - Amnesia [None]
  - Diarrhoea [None]
  - Tremor [None]
  - Dizziness [None]
  - Malaise [None]
  - Tinnitus [None]
  - Ocular hyperaemia [None]
  - Fatigue [None]
